FAERS Safety Report 23503934 (Version 2)
Quarter: 2024Q1

REPORT INFORMATION
  Report Type: Spontaneous
  Country: US (occurrence: US)
  Receive Date: 20240209
  Receipt Date: 20240329
  Transmission Date: 20240410
  Serious: No
  Sender: FDA-Public Use
  Company Number: US-BIOGEN-2024BI01249337

PATIENT
  Age: 73 Year
  Sex: Female

DRUGS (2)
  1. VUMERITY [Suspect]
     Active Substance: DIROXIMEL FUMARATE
     Indication: Multiple sclerosis
     Route: 050
     Dates: start: 20201215
  2. VUMERITY [Suspect]
     Active Substance: DIROXIMEL FUMARATE
     Dosage: ONE CAPSULE VUMERITY IN MORNING AND EVENING
     Route: 050

REACTIONS (1)
  - Blood test abnormal [Unknown]

NARRATIVE: CASE EVENT DATE: 20231201
